FAERS Safety Report 8332587-0 (Version None)
Quarter: 2012Q2

REPORT INFORMATION
  Report Type: 
  Country: None (occurrence: None)
  Receive Date: 20120503
  Receipt Date: 20120425
  Transmission Date: 20120825
  Serious: Yes (Other)
  Sender: FDA-Public Use
  Company Number: US-BAYER-2011-074868

PATIENT
  Age: 30 Year
  Sex: Female

DRUGS (6)
  1. HERBAL PREPARATION [Concomitant]
  2. SPIRULINA [Concomitant]
  3. METRONIDAZOLE [Concomitant]
     Dosage: 0.75%
     Route: 067
  4. YAZ [Suspect]
     Dosage: UNK
     Route: 048
  5. LOVAZA [Concomitant]
  6. YASMIN [Suspect]
     Route: 048

REACTIONS (3)
  - PAIN [None]
  - INJURY [None]
  - DEEP VEIN THROMBOSIS [None]
